FAERS Safety Report 25366247 (Version 1)
Quarter: 2025Q2

REPORT INFORMATION
  Report Type: Spontaneous
  Country: US (occurrence: US)
  Receive Date: 20250528
  Receipt Date: 20250528
  Transmission Date: 20250717
  Serious: Yes (Hospitalization, Other)
  Sender: PHARMAXIS EUROPE LIMITED
  Company Number: US-Pharmaxis-001247

PATIENT
  Age: 26 Year
  Sex: Male

DRUGS (1)
  1. MANNITOL [Suspect]
     Active Substance: MANNITOL
     Indication: Reduction of increased intracranial pressure
     Route: 065

REACTIONS (1)
  - Anaphylactic reaction [Unknown]
